FAERS Safety Report 9362961 (Version 1)
Quarter: 2013Q2

REPORT INFORMATION
  Report Type: Spontaneous
  Country: US (occurrence: None)
  Receive Date: 20130621
  Receipt Date: 20130621
  Transmission Date: 20140414
  Serious: Yes (Other)
  Sender: FDA-Public Use
  Company Number: None

PATIENT
  Age: 43 Year
  Sex: Male
  Weight: 97.98 kg

DRUGS (1)
  1. OXYCODONE [Suspect]
     Route: 048
     Dates: start: 20130619

REACTIONS (2)
  - Drug hypersensitivity [None]
  - Drug intolerance [None]
